FAERS Safety Report 20177080 (Version 1)
Quarter: 2021Q4

REPORT INFORMATION
  Report Type: Spontaneous
  Country: US (occurrence: None)
  Receive Date: 20211211
  Receipt Date: 20211211
  Transmission Date: 20220303
  Serious: Yes (Hospitalization)
  Sender: FDA-Public Use
  Company Number: None

PATIENT
  Age: 60 Year
  Sex: Male
  Weight: 66.6 kg

DRUGS (16)
  1. CAPECITABINE [Suspect]
     Active Substance: CAPECITABINE
     Indication: Pancreatic carcinoma
     Dosage: OTHER FREQUENCY : BIDX2 WEEKS, 1 OFF;?
     Route: 048
     Dates: start: 20211020
  2. ABRAXANE 100MG [Concomitant]
  3. BISOPROLOL-HYDROCHLOROTHIAZIDE 10-6.25MG [Concomitant]
  4. COLESTIPOL [Concomitant]
     Active Substance: COLESTIPOL
  5. CREON 24000-76000 UNIT [Concomitant]
  6. LIDOCAINE-PRILOCAINE 2.5-2.5% [Concomitant]
  7. LEXAPRO [Concomitant]
     Active Substance: ESCITALOPRAM OXALATE
  8. MEGACE ES 625MG [Concomitant]
  9. OLANZAPINE [Concomitant]
     Active Substance: OLANZAPINE
  10. OXYCODONE [Concomitant]
     Active Substance: OXYCODONE
  11. POTASSIUM CHLORIDE 20 MEQ [Concomitant]
  12. PROCHLORPERAZINE 10MG [Concomitant]
  13. TYLENOL [Concomitant]
     Active Substance: ACETAMINOPHEN
  14. ZOFRAN [Concomitant]
     Active Substance: ONDANSETRON HYDROCHLORIDE
  15. MORPHINE 30MG [Concomitant]
  16. DOXEPIN 25MG [Concomitant]

REACTIONS (1)
  - Oesophagitis [None]

NARRATIVE: CASE EVENT DATE: 20211206
